FAERS Safety Report 24821220 (Version 2)
Quarter: 2025Q1

REPORT INFORMATION
  Report Type: Spontaneous
  Country: US (occurrence: US)
  Receive Date: 20250108
  Receipt Date: 20250203
  Transmission Date: 20250409
  Serious: No
  Sender: SANOFI AVENTIS
  Company Number: US-SA-2025SA002993

PATIENT
  Age: 42 Year
  Sex: Male
  Weight: 122.47 kg

DRUGS (7)
  1. DUPIXENT [Suspect]
     Active Substance: DUPILUMAB
     Indication: Nasal polyps
     Dosage: 300 MG, QOW
     Route: 058
     Dates: start: 202410, end: 202411
  2. DUPIXENT [Suspect]
     Active Substance: DUPILUMAB
     Dosage: 300 MG, Q3W
     Route: 058
     Dates: start: 202411
  3. DUPIXENT [Suspect]
     Active Substance: DUPILUMAB
     Dosage: 300MG QOW
     Route: 030
     Dates: start: 20241010, end: 20241126
  4. ACCUNEB [Concomitant]
     Active Substance: ALBUTEROL SULFATE
  5. ALBUTEROL SULFATE [Concomitant]
     Active Substance: ALBUTEROL SULFATE
  6. MOMETASONE [Concomitant]
     Active Substance: MOMETASONE
     Dosage: UNK, BID
  7. AZELASTINE [Concomitant]
     Active Substance: AZELASTINE
     Dosage: 1PUFF INEACH NOSTRIL NASALLY WICE A DAY
     Route: 045

REACTIONS (17)
  - Nasal dryness [Unknown]
  - Dry throat [Not Recovered/Not Resolved]
  - Chronic sinusitis [Unknown]
  - Nasal turbinate hypertrophy [Unknown]
  - Nasal septum deviation [Unknown]
  - Nasal polyps [Unknown]
  - Cough [Recovered/Resolved]
  - Rhinorrhoea [Not Recovered/Not Resolved]
  - Condition aggravated [Not Recovered/Not Resolved]
  - Nasopharyngitis [Unknown]
  - Headache [Unknown]
  - Arthralgia [Recovered/Resolved]
  - Injection site pain [Unknown]
  - Injection site swelling [Recovered/Resolved]
  - Therapeutic response shortened [Unknown]
  - Inappropriate schedule of product administration [Unknown]
  - Incorrect route of product administration [Unknown]

NARRATIVE: CASE EVENT DATE: 20240101
